FAERS Safety Report 23471018 (Version 2)
Quarter: 2024Q2

REPORT INFORMATION
  Report Type: Spontaneous
  Country: US (occurrence: US)
  Receive Date: 20240202
  Receipt Date: 20240514
  Transmission Date: 20240716
  Serious: Yes (Other)
  Sender: FDA-Public Use
  Company Number: US-SA-SAC20240201000448

PATIENT
  Age: 18 Year
  Sex: Female
  Weight: 95.6 kg

DRUGS (1)
  1. DUPIXENT [Suspect]
     Active Substance: DUPILUMAB
     Indication: Eosinophilic oesophagitis
     Dosage: 300 MG, QW
     Route: 058
     Dates: start: 20230511

REACTIONS (6)
  - Choking [Unknown]
  - Gastrointestinal pain [Unknown]
  - Peripheral swelling [Unknown]
  - Pain [Unknown]
  - Hiccups [Unknown]
  - Pruritus [Unknown]
